FAERS Safety Report 21665269 (Version 5)
Quarter: 2023Q1

REPORT INFORMATION
  Report Type: Report from Study
  Country: US (occurrence: US)
  Receive Date: 20221201
  Receipt Date: 20230221
  Transmission Date: 20230417
  Serious: Yes (Hospitalization, Other)
  Sender: FDA-Public Use
  Company Number: US-ABBVIE-4218619

PATIENT
  Age: 56 Year
  Sex: Female
  Weight: 110 kg

DRUGS (12)
  1. RINVOQ [Suspect]
     Active Substance: UPADACITINIB
     Indication: Rheumatoid arthritis
     Route: 048
     Dates: start: 20220705, end: 20220706
  2. RINVOQ [Suspect]
     Active Substance: UPADACITINIB
     Indication: Rheumatoid arthritis
     Route: 048
     Dates: start: 20200714
  3. RINVOQ [Suspect]
     Active Substance: UPADACITINIB
     Indication: Rheumatoid arthritis
     Route: 048
     Dates: start: 20220718, end: 20230214
  4. RINVOQ [Suspect]
     Active Substance: UPADACITINIB
     Indication: Rheumatoid arthritis
     Dosage: 15 MILLIGRAM
     Route: 048
     Dates: start: 2020, end: 20220611
  5. FOLIC ACID [Concomitant]
     Active Substance: FOLIC ACID
     Indication: Folate deficiency
  6. METHOTREXATE [Concomitant]
     Active Substance: METHOTREXATE
     Indication: Product used for unknown indication
  7. ALBUTEROL SULFATE [Concomitant]
     Active Substance: ALBUTEROL SULFATE
     Indication: Asthma
     Dosage: PROAIR/ALBUTEROL SULFATE
     Route: 055
  8. IRON [Concomitant]
     Active Substance: IRON
     Indication: Iron deficiency
  9. VITAMIN D3 [Concomitant]
     Active Substance: CHOLECALCIFEROL
     Indication: Vitamin D deficiency
  10. VITAMIN B12 [Concomitant]
     Active Substance: CYANOCOBALAMIN
     Indication: Gastric bypass
  11. ATORVASTATIN [Concomitant]
     Active Substance: ATORVASTATIN
     Indication: Blood cholesterol abnormal
  12. AZELAIC ACID [Concomitant]
     Active Substance: AZELAIC ACID
     Indication: Rosacea

REACTIONS (17)
  - Overweight [Recovering/Resolving]
  - Arthralgia [Not Recovered/Not Resolved]
  - Diarrhoea [Recovered/Resolved]
  - Gastric bypass [Unknown]
  - Osteoarthritis [Recovering/Resolving]
  - Tooth erosion [Unknown]
  - Dehydration [Recovered/Resolved]
  - Nausea [Not Recovered/Not Resolved]
  - Pathological tooth fracture [Not Recovered/Not Resolved]
  - Eating disorder [Recovering/Resolving]
  - Malabsorption [Not Recovered/Not Resolved]
  - Bone pain [Not Recovered/Not Resolved]
  - Mobility decreased [Recovering/Resolving]
  - Hyperlipidaemia [Recovering/Resolving]
  - Gastrooesophageal reflux disease [Recovered/Resolved]
  - Liver function test increased [Not Recovered/Not Resolved]
  - Psychological factor affecting medical condition [Recovering/Resolving]

NARRATIVE: CASE EVENT DATE: 20201201
